FAERS Safety Report 19714280 (Version 1)
Quarter: 2021Q3

REPORT INFORMATION
  Report Type: Spontaneous
  Country: US (occurrence: US)
  Receive Date: 20210818
  Receipt Date: 20210818
  Transmission Date: 20211014
  Serious: No
  Sender: FDA-Public Use
  Company Number: US-CELLTRION INC.-2021US008004

PATIENT

DRUGS (8)
  1. BENDEKA [Concomitant]
     Active Substance: BENDAMUSTINE HYDROCHLORIDE
     Dosage: 200 MG DAY 1 AND DAY 2 EVERY 28 DAYS
     Dates: start: 20210525
  2. BENDEKA [Concomitant]
     Active Substance: BENDAMUSTINE HYDROCHLORIDE
     Dosage: 200 MG DAY 1 AND DAY 2 EVERY 28 DAYS
     Dates: start: 20210526
  3. BENDEKA [Concomitant]
     Active Substance: BENDAMUSTINE HYDROCHLORIDE
     Dosage: 200 MG DAY 1 AND DAY 2 EVERY 28 DAYS
     Dates: start: 20210428
  4. BENDEKA [Concomitant]
     Active Substance: BENDAMUSTINE HYDROCHLORIDE
     Indication: WALDENSTROM^S MACROGLOBULINAEMIA
     Dosage: 200 MG DAY 1 AND DAY 2 EVERY 28 DAYS
     Dates: start: 20210424
  5. TRUXIMA [Suspect]
     Active Substance: RITUXIMAB-ABBS
     Dosage: 1000 MILLIGRAM (WEEKLY THEN EVERY 28 DAYS)
     Dates: start: 20210505
  6. TRUXIMA [Suspect]
     Active Substance: RITUXIMAB-ABBS
     Indication: WALDENSTROM^S MACROGLOBULINAEMIA
     Dosage: 800 MILLIGRAM (WEEKLY THEN EVERY 28 DAYS)
     Dates: start: 20210414
  7. TRUXIMA [Suspect]
     Active Substance: RITUXIMAB-ABBS
     Dosage: 1000 MILLIGRAM (WEEKLY THEN EVERY 28 DAYS)
     Dates: start: 20210428
  8. TRUXIMA [Suspect]
     Active Substance: RITUXIMAB-ABBS
     Dosage: 1000 MILLIGRAM (WEEKLY THEN EVERY 28 DAYS)
     Dates: start: 20210526

REACTIONS (1)
  - Off label use [Unknown]

NARRATIVE: CASE EVENT DATE: 20210414
